FAERS Safety Report 18534532 (Version 3)
Quarter: 2021Q2

REPORT INFORMATION
  Report Type: Report from Study
  Country: ES (occurrence: ES)
  Receive Date: 20201123
  Receipt Date: 20210406
  Transmission Date: 20210717
  Serious: Yes (Hospitalization, Other)
  Sender: FDA-Public Use
  Company Number: ES-BRISTOL-MYERS SQUIBB COMPANY-BMS-2020-097849

PATIENT
  Age: 64 Year
  Sex: Male
  Weight: 75 kg

DRUGS (6)
  1. TAPENTADOL [Concomitant]
     Active Substance: TAPENTADOL
     Indication: PRODUCT USED FOR UNKNOWN INDICATION
     Dosage: 50 MILLIGRAM, DRUG INTERVAL 12
     Route: 048
     Dates: start: 20201123
  2. PANTOPRAZOL [PANTOPRAZOLE] [Concomitant]
     Active Substance: PANTOPRAZOLE
     Indication: PRODUCT USED FOR UNKNOWN INDICATION
     Dosage: 20 MILLIGRAM, QD
     Route: 048
  3. PULRODEMSTAT BESILATE. [Suspect]
     Active Substance: PULRODEMSTAT BESILATE
     Indication: SMALL CELL LUNG CANCER EXTENSIVE STAGE
     Dosage: 40 MILLIGRAM, QWK
     Route: 048
     Dates: start: 20201027
  4. ENALAPRIL [Concomitant]
     Active Substance: ENALAPRIL
     Indication: PRODUCT USED FOR UNKNOWN INDICATION
     Dosage: 20 MILLIGRAM, QD
     Route: 048
  5. KREON [Concomitant]
     Active Substance: PANCRELIPASE
     Indication: PRODUCT USED FOR UNKNOWN INDICATION
     Dosage: 10000 MILLIGRAM, 3 DOSAGES, 1 INTERVAL
     Route: 048
  6. NIVOLUMAB [Suspect]
     Active Substance: NIVOLUMAB
     Indication: SMALL CELL LUNG CANCER EXTENSIVE STAGE
     Dosage: 480 MILLIGRAM, Q4WK
     Route: 041
     Dates: start: 20201027, end: 20201027

REACTIONS (1)
  - Thrombocytopenia [Recovered/Resolved]

NARRATIVE: CASE EVENT DATE: 20201110
